FAERS Safety Report 7444385-0 (Version None)
Quarter: 2011Q2

REPORT INFORMATION
  Report Type: 
  Country: None (occurrence: None)
  Receive Date: 20110427
  Receipt Date: 20110427
  Transmission Date: 20111010
  Serious: Yes (Other)
  Sender: FDA-Public Use
  Company Number: None

PATIENT
  Age: 75 Year
  Sex: Female
  Weight: 88.4514 kg

DRUGS (1)
  1. SUCRALFATE [Suspect]
     Dosage: 1 GM. 3X/DAY MOUTH
     Route: 048

REACTIONS (1)
  - ABDOMINAL DISTENSION [None]
